FAERS Safety Report 6832679-9 (Version None)
Quarter: 2010Q3

REPORT INFORMATION
  Report Type: 
  Country: None (occurrence: None)
  Receive Date: 20100712
  Receipt Date: 20080506
  Transmission Date: 20110219
  Serious: No
  Sender: FDA-Public Use
  Company Number: US-PFIZER INC-2007021156

PATIENT
  Sex: Female
  Weight: 118.39 kg

DRUGS (15)
  1. CHANTIX [Suspect]
     Indication: SMOKING CESSATION THERAPY
     Dates: start: 20070309
  2. ACETYLSALICYLIC ACID [Concomitant]
  3. METFORMIN [Concomitant]
     Indication: DIABETES MELLITUS
  4. GLIPIZIDE [Concomitant]
     Indication: DIABETES MELLITUS
  5. NEXIUM [Concomitant]
  6. MELOXICAM [Concomitant]
  7. DILTIAZEM HYDROCHLORIDE [Concomitant]
  8. VALSARTAN [Concomitant]
  9. EVISTA [Concomitant]
  10. TOPROL-XL [Concomitant]
  11. SIMVASTATIN [Concomitant]
  12. MULTI-VITAMINS [Concomitant]
  13. CALCIUM [Concomitant]
  14. UBIDECARENONE [Concomitant]
  15. ZETIA [Concomitant]

REACTIONS (2)
  - ABNORMAL DREAMS [None]
  - DIZZINESS [None]
